FAERS Safety Report 10484667 (Version 1)
Quarter: 2014Q3

REPORT INFORMATION
  Report Type: Report from Study
  Country: US (occurrence: US)
  Receive Date: 20140930
  Receipt Date: 20140930
  Transmission Date: 20150326
  Serious: Yes (Other)
  Sender: FDA-Public Use
  Company Number: US-ALEXION PHARMACEUTICALS INC-A200700310

PATIENT
  Age: 44 Year
  Sex: Female

DRUGS (3)
  1. SOLIRIS [Suspect]
     Active Substance: ECULIZUMAB
     Indication: PAROXYSMAL NOCTURNAL HAEMOGLOBINURIA
     Dosage: UNK
     Route: 042
     Dates: start: 20070906, end: 20080512
  2. EXJADE [Suspect]
     Active Substance: DEFERASIROX
     Indication: IRON OVERLOAD
     Dosage: UNK
  3. COUMADIN [Concomitant]
     Active Substance: WARFARIN SODIUM
     Indication: PRODUCT USED FOR UNKNOWN INDICATION
     Dosage: UNK
     Dates: start: 2003

REACTIONS (15)
  - Drug ineffective [Unknown]
  - Thrombosis [Unknown]
  - Oedema peripheral [Not Recovered/Not Resolved]
  - Pain [Recovering/Resolving]
  - Iron overload [Unknown]
  - Weight bearing difficulty [Not Recovered/Not Resolved]
  - Pyrexia [Unknown]
  - Drug intolerance [Unknown]
  - Gait disturbance [Not Recovered/Not Resolved]
  - Renal disorder [Unknown]
  - Fatigue [Not Recovered/Not Resolved]
  - Transfusion [Not Recovered/Not Resolved]
  - Osteoarthritis [Not Recovered/Not Resolved]
  - Marrow hyperplasia [Unknown]
  - Blood lactate dehydrogenase increased [Unknown]

NARRATIVE: CASE EVENT DATE: 20080611
